FAERS Safety Report 7582034-1 (Version None)
Quarter: 2011Q2

REPORT INFORMATION
  Report Type: 
  Country: None (occurrence: None)
  Receive Date: 20110630
  Receipt Date: 20110622
  Transmission Date: 20111010
  Serious: No
  Sender: FDA-Public Use
  Company Number: US-BIOGENIDEC-2011BI011639

PATIENT
  Sex: Female

DRUGS (3)
  1. TYSABRI [Suspect]
     Route: 042
     Dates: start: 20071025, end: 20080919
  2. TYSABRI [Suspect]
     Indication: MULTIPLE SCLEROSIS
     Route: 042
     Dates: start: 20100414, end: 20101022
  3. TYSABRI [Suspect]
     Route: 042
     Dates: start: 20110616

REACTIONS (5)
  - ARTHRALGIA [None]
  - BALANCE DISORDER [None]
  - GAIT DISTURBANCE [None]
  - CONTUSION [None]
  - FALL [None]
